FAERS Safety Report 17098131 (Version 1)
Quarter: 2019Q4

REPORT INFORMATION
  Report Type: Spontaneous
  Country: JP (occurrence: JP)
  Receive Date: 20191202
  Receipt Date: 20191202
  Transmission Date: 20200122
  Serious: Yes (Death, Other)
  Sender: FDA-Public Use
  Company Number: JP-PFIZER INC-2019516962

PATIENT

DRUGS (3)
  1. PEMBROLIZUMAB. [Suspect]
     Active Substance: PEMBROLIZUMAB
  2. XALKORI [Suspect]
     Active Substance: CRIZOTINIB
  3. ALIMTA [Suspect]
     Active Substance: PEMETREXED DISODIUM

REACTIONS (3)
  - Interstitial lung disease [Unknown]
  - Liver disorder [Unknown]
  - Death [Fatal]
